FAERS Safety Report 10566577 (Version 3)
Quarter: 2016Q1

REPORT INFORMATION
  Report Type: Spontaneous
  Country: DK (occurrence: DK)
  Receive Date: 20141105
  Receipt Date: 20160119
  Transmission Date: 20160525
  Serious: Yes (Other)
  Sender: FDA-Public Use
  Company Number: DK-PFIZER INC-2014302284

PATIENT
  Age: 44 Year
  Sex: Male

DRUGS (11)
  1. PREGABALIN. [Interacting]
     Active Substance: PREGABALIN
     Dosage: 150+ 75 MG
  2. CLONAZEPAM. [Suspect]
     Active Substance: CLONAZEPAM
     Dosage: 0.5 MG, 2X/DAY
  3. BUPRENORPHINE. [Suspect]
     Active Substance: BUPRENORPHINE
  4. PREGABALIN. [Interacting]
     Active Substance: PREGABALIN
     Dosage: 225+75 MG
  5. SERTINDOLE [Concomitant]
     Active Substance: SERTINDOLE
     Dosage: 16 MG, 1X/DAY
  6. PREGABALIN. [Interacting]
     Active Substance: PREGABALIN
     Indication: ANXIETY
     Dosage: 75 MG, DAILY
  7. PREGABALIN. [Interacting]
     Active Substance: PREGABALIN
     Indication: SCHIZOPHRENIA
     Dosage: 75 MG, 2X/DAY
  8. CLOZAPINE. [Interacting]
     Active Substance: CLOZAPINE
     Indication: SCHIZOPHRENIA
     Dosage: 150+500 MG
  9. CLONAZEPAM. [Suspect]
     Active Substance: CLONAZEPAM
     Dosage: 0.5 MG, 1X/DAY
  10. VALPROATE [Concomitant]
     Active Substance: VALPROATE SODIUM
     Indication: SEIZURE
     Dosage: 300 MG, 2X/DAY
  11. LITHIUM. [Concomitant]
     Active Substance: LITHIUM
     Dosage: 18 MMOL, 1X/DAY

REACTIONS (11)
  - Drug interaction [Unknown]
  - Foot fracture [Unknown]
  - Sleep attacks [Unknown]
  - Product use issue [Unknown]
  - Drug level increased [Recovered/Resolved]
  - Depressed level of consciousness [Unknown]
  - Dysarthria [Unknown]
  - Drug abuse [Unknown]
  - Wound [Unknown]
  - Fall [Unknown]
  - Syncope [Unknown]
